FAERS Safety Report 17543174 (Version 1)
Quarter: 2020Q1

REPORT INFORMATION
  Report Type: Report from Study
  Country: PL (occurrence: PL)
  Receive Date: 20200316
  Receipt Date: 20200316
  Transmission Date: 20200409
  Serious: Yes (Other)
  Sender: FDA-Public Use
  Company Number: PL-AUROBINDO-AUR-APL-2020-012359

PATIENT
  Age: 69 Year
  Sex: Male

DRUGS (5)
  1. VENLAFAXINE [Suspect]
     Active Substance: VENLAFAXINE HYDROCHLORIDE
     Indication: ANTIDEPRESSANT THERAPY
     Dosage: UNK
     Route: 065
  2. INDAPAMIDE. [Concomitant]
     Active Substance: INDAPAMIDE
     Indication: PRODUCT USED FOR UNKNOWN INDICATION
     Dosage: UNK
     Route: 065
  3. POTASSIUM [Concomitant]
     Active Substance: POTASSIUM
     Indication: PRODUCT USED FOR UNKNOWN INDICATION
     Dosage: UNK
     Route: 065
  4. PROPAFENONE. [Interacting]
     Active Substance: PROPAFENONE
     Indication: CARDIOVASCULAR DISORDER
     Dosage: UNK
     Route: 065
  5. PERINDOPRIL [Concomitant]
     Active Substance: PERINDOPRIL
     Indication: PRODUCT USED FOR UNKNOWN INDICATION
     Dosage: UNK
     Route: 065

REACTIONS (5)
  - Drug interaction [Unknown]
  - Bradycardia [Unknown]
  - Dizziness [Unknown]
  - Toxicity to various agents [Unknown]
  - Vision blurred [Unknown]
